FAERS Safety Report 19678080 (Version 1)
Quarter: 2021Q3

REPORT INFORMATION
  Report Type: Report from Study
  Country: US (occurrence: US)
  Receive Date: 20210810
  Receipt Date: 20210810
  Transmission Date: 20211014
  Serious: Yes (Other)
  Sender: FDA-Public Use
  Company Number: US-ROCHE-2885077

PATIENT
  Sex: Female

DRUGS (1)
  1. COBIMETINIB. [Suspect]
     Active Substance: COBIMETINIB
     Indication: HISTIOCYTIC SARCOMA
     Route: 065

REACTIONS (5)
  - Dermatitis acneiform [Unknown]
  - Urinary tract infection [Unknown]
  - Hyponatraemia [Unknown]
  - Confusional state [Unknown]
  - Hypernatraemia [Unknown]

NARRATIVE: CASE EVENT DATE: 20181124
